FAERS Safety Report 26141149 (Version 1)
Quarter: 2025Q4

REPORT INFORMATION
  Report Type: Spontaneous
  Country: US (occurrence: US)
  Receive Date: 20251210
  Receipt Date: 20251210
  Transmission Date: 20260117
  Serious: Yes (Other)
  Sender: PFIZER
  Company Number: US-PFIZER INC-202500235643

PATIENT
  Age: 64 Year
  Sex: Male

DRUGS (2)
  1. DOBUTAMINE HYDROCHLORIDE [Suspect]
     Active Substance: DOBUTAMINE HYDROCHLORIDE
     Indication: Stress echocardiogram
     Dosage: UNK
     Dates: start: 20240920, end: 20240920
  2. DEFINITY [Concomitant]
     Active Substance: PERFLUTREN
     Dosage: APPROX 0.35-0.4ML DEF IN 10ML DILUENT
     Route: 040
     Dates: start: 20240920, end: 20240920

REACTIONS (2)
  - Hypertension [Recovered/Resolved]
  - Vision blurred [Recovered/Resolved]

NARRATIVE: CASE EVENT DATE: 20240920
